FAERS Safety Report 11571074 (Version 1)
Quarter: 2015Q3

REPORT INFORMATION
  Report Type: Spontaneous
  Country: IT (occurrence: IT)
  Receive Date: 20150929
  Receipt Date: 20150929
  Transmission Date: 20151125
  Serious: Yes (Hospitalization)
  Sender: FDA-Public Use
  Company Number: IT-SA-2015SA145950

PATIENT
  Age: 91 Year
  Sex: Female

DRUGS (10)
  1. LASIX [Concomitant]
     Active Substance: FUROSEMIDE
     Indication: RENAL FAILURE
     Dosage: 25 MG, 30 TABLETS
     Route: 048
  2. FERRO-GRAD [Concomitant]
     Active Substance: FERROUS SULFATE\FERROUS SULFATE, DRIED
     Indication: IRON DEFICIENCY ANAEMIA
     Dosage: 105 MG PROLONGED RELEASE TABLETS^ 40 TABLETS
     Route: 048
  3. LANTUS [Suspect]
     Active Substance: INSULIN GLARGINE
     Indication: TYPE 2 DIABETES MELLITUS
     Route: 058
  4. TRIATEC [Concomitant]
     Active Substance: RAMIPRIL
     Indication: HYPERTENSIVE HEART DISEASE
     Dosage: 2.5 MG TABLETS^  28 DIVISIBILE TABLETS
     Route: 048
  5. LANSOPRAZOLE. [Concomitant]
     Active Substance: LANSOPRAZOLE
     Route: 048
  6. ANGIZEM [Concomitant]
     Indication: HYPERTENSIVE HEART DISEASE
     Dosage: 200 MG PROLONGED RELEASE HARD CAPSULES^ 36 HARD CAPSULES
     Route: 048
  7. DEPONIT [Concomitant]
     Active Substance: NITROGLYCERIN
     Indication: HYPERTENSIVE HEART DISEASE
     Dosage: 10 MG / 24 H TRANSDERMAL PATCHES ^15 PATCHES
     Route: 062
  8. SERENASE [Concomitant]
     Active Substance: HALOPERIDOL
     Dosage: 2MG / ML ORAL DROPS SOLUTION^1 BOTTLE 15 ML
  9. SPIRIVA [Concomitant]
     Active Substance: TIOTROPIUM BROMIDE MONOHYDRATE
     Indication: CHRONIC OBSTRUCTIVE PULMONARY DISEASE
     Dosage: 18 MCG CAPSULES IN BLISTER OF 30 CAPSULES, WITH HANDIHALERDEVICE
     Route: 055
  10. HUMALOG [Suspect]
     Active Substance: INSULIN LISPRO
     Indication: TYPE 2 DIABETES MELLITUS
     Route: 058

REACTIONS (2)
  - Hypoglycaemia [Recovered/Resolved]
  - Injury [Recovered/Resolved]

NARRATIVE: CASE EVENT DATE: 20140120
